FAERS Safety Report 19153528 (Version 12)
Quarter: 2021Q3

REPORT INFORMATION
  Report Type: Spontaneous
  Country: PL (occurrence: PL)
  Receive Date: 20210419
  Receipt Date: 20210921
  Transmission Date: 20211014
  Serious: Yes (Life-Threatening, Hospitalization, Other)
  Sender: FDA-Public Use
  Company Number: PL-MYLANLABS-2021M1022411

PATIENT
  Age: 69 Year
  Sex: Female

DRUGS (36)
  1. NIMESULID [Interacting]
     Active Substance: NIMESULIDE
     Indication: ANTIINFLAMMATORY THERAPY
  2. DABIGATRAN [Interacting]
     Active Substance: DABIGATRAN
     Indication: ISCHAEMIC STROKE
  3. METOPROLOL. [Interacting]
     Active Substance: METOPROLOL
     Indication: ATRIAL FIBRILLATION
     Dosage: 100 MILLIGRAM, QD
     Route: 048
  4. METOPROLOL. [Interacting]
     Active Substance: METOPROLOL
     Dosage: 200 MILLIGRAM, QD
     Route: 065
  5. SPORANOX [Interacting]
     Active Substance: ITRACONAZOLE
     Indication: TINEA VERSICOLOUR
     Dosage: 100 MILLIGRAM, BID (200 MILLIGRAM, DAILY, FOR 7 DAYS)
     Route: 048
  6. NIMESULID [Interacting]
     Active Substance: NIMESULIDE
     Indication: INFLAMMATION
  7. METOPROLOL. [Interacting]
     Active Substance: METOPROLOL
     Dosage: 200 MILLIGRAM
     Route: 065
  8. SPORANOX [Interacting]
     Active Substance: ITRACONAZOLE
     Dosage: 200 MILLIGRAM, QD (100 MG, 2X/DAY )
     Route: 048
  9. NIMESULID [Interacting]
     Active Substance: NIMESULIDE
     Indication: ANALGESIC INTERVENTION SUPPORTIVE THERAPY
     Dosage: 100 MILLIGRAM, BID (100 MG, 2X/DAY (EVERY 12 HOURS))
     Route: 048
  10. PROPAFENONE. [Interacting]
     Active Substance: PROPAFENONE
     Indication: ATRIAL FIBRILLATION
     Dosage: 300 MILLIGRAM, PRN (ON DEMAND IN THE CASE OF AN EPISODE OF ATRIAL FIBRILLATION (AF))
     Route: 048
  11. KETOPROFEN. [Interacting]
     Active Substance: KETOPROFEN
     Indication: ANALGESIC THERAPY
     Dosage: UNK UNK, PRN (TAKEN AT TIMES OF SEVERE ARTHRALGIA)
     Route: 048
  12. ROSUVASTATIN. [Interacting]
     Active Substance: ROSUVASTATIN
     Indication: HYPERTENSION
     Dosage: 10 MILLIGRAM, QD (10 MG, 1X/DAY)
     Route: 048
  13. AMLODIPINE BESILATE W/INDAPAMIDE/PE/08717501/ [Suspect]
     Active Substance: AMLODIPINE BESYLATE\INDAPAMIDE\PERINDOPRIL ARGININE
     Indication: PRODUCT USED FOR UNKNOWN INDICATION
     Dosage: UNK
  14. NIMESULID [Interacting]
     Active Substance: NIMESULIDE
     Indication: PAIN
  15. DABIGATRAN [Interacting]
     Active Substance: DABIGATRAN
     Indication: PROPHYLAXIS
  16. DABIGATRAN [Interacting]
     Active Substance: DABIGATRAN
     Indication: ISCHAEMIC HEART DISEASE PROPHYLAXIS
  17. NIMESULIDE [Concomitant]
     Active Substance: NIMESULIDE
     Indication: ANALGESIC THERAPY
     Dosage: 100 MG EVERY 12 HOURS
  18. KETOPROFEN. [Concomitant]
     Active Substance: KETOPROFEN
     Indication: PRODUCT USED FOR UNKNOWN INDICATION
     Dosage: UNK
  19. ITRACONAZOLE. [Concomitant]
     Active Substance: ITRACONAZOLE
     Indication: PRODUCT USED FOR UNKNOWN INDICATION
     Dosage: UNK
  20. ACETYLSALICYLIC ACID [Interacting]
     Active Substance: ASPIRIN
     Indication: VIRAL INFECTION
     Dosage: UNK, FOR 3 DAYS
     Route: 048
  21. ACETYLSALICYLIC ACID [Concomitant]
     Active Substance: ASPIRIN
     Indication: VIRAL INFECTION
     Dosage: UNK
  22. NIMESULIDE [Concomitant]
     Active Substance: NIMESULIDE
     Indication: ANTIINFLAMMATORY THERAPY
     Dosage: UNK
  23. DABIGATRAN                         /01633202/ [Concomitant]
     Active Substance: DABIGATRAN
     Indication: PRODUCT USED FOR UNKNOWN INDICATION
     Dosage: UNK
  24. ACETYLSALICYLIC ACID [Interacting]
     Active Substance: ASPIRIN
     Dosage: UNK
     Route: 048
  25. ROSUVASTATIN. [Interacting]
     Active Substance: ROSUVASTATIN
     Dosage: 1 DOSAGE FORM
     Route: 048
  26. NIMESULID [Interacting]
     Active Substance: NIMESULIDE
     Indication: ANALGESIC THERAPY
  27. PROPAFENONE. [Interacting]
     Active Substance: PROPAFENONE
     Indication: ARRHYTHMIA PROPHYLAXIS
     Dosage: UNK UNK, PRN
  28. PROPAFENONE. [Interacting]
     Active Substance: PROPAFENONE
     Dosage: 300 MILLIGRAM, AS A SINGLE DOSE
     Route: 065
  29. TRIPLIXAM [Interacting]
     Active Substance: AMLODIPINE BESYLATE\INDAPAMIDE\PERINDOPRIL ARGININE
     Indication: PRODUCT USED FOR UNKNOWN INDICATION
     Dosage: UNK
     Route: 065
  30. KETOPROFEN. [Interacting]
     Active Substance: KETOPROFEN
     Indication: ARTHRALGIA
  31. METOPROLOL. [Concomitant]
     Active Substance: METOPROLOL
     Indication: HYPERTENSION
     Dosage: 100 MILLIGRAM, QD
  32. METOPROLOL. [Suspect]
     Active Substance: METOPROLOL
     Indication: HYPERTENSION
     Dosage: 100 MILLIGRAM, QD (100 MG, 1X/DAY )
     Route: 048
  33. ROSUVASTATIN. [Interacting]
     Active Substance: ROSUVASTATIN
     Dosage: 10 MILLIGRAM
     Route: 065
  34. AMLODIPINE W/INDAPAMIDE/PERINDOPRIL [Interacting]
     Active Substance: AMLODIPINE\INDAPAMIDE\PERINDOPRIL
     Indication: HYPERTENSION
     Dosage: 1 DOSAGE FORM, QD (MORNING)
     Route: 048
  35. DABIGATRAN [Interacting]
     Active Substance: DABIGATRAN
     Indication: ANTICOAGULANT THERAPY
     Dosage: 300 MILLIGRAM QD (150 MG 2 ? 1 TABL)
     Route: 048
  36. PROPAFENONE                        /00546302/ [Concomitant]
     Active Substance: PROPAFENONE HYDROCHLORIDE
     Dosage: UNK

REACTIONS (24)
  - Atrioventricular block complete [Recovered/Resolved]
  - Asthenia [Recovered/Resolved]
  - Cardiomyopathy [Recovered/Resolved]
  - Pallor [Recovered/Resolved]
  - Product dispensing issue [Unknown]
  - Leukocytosis [Recovered/Resolved]
  - Bradyarrhythmia [Recovered/Resolved]
  - Drug abuse [Unknown]
  - Syncope [Recovered/Resolved]
  - Blood pressure decreased [Recovered/Resolved]
  - Troponin increased [Recovered/Resolved]
  - Haemorrhage [Unknown]
  - Bradycardia [Recovered/Resolved]
  - Product use issue [Unknown]
  - Duplicate therapy error [Unknown]
  - Circumstance or information capable of leading to medication error [Recovering/Resolving]
  - Labelled drug-drug interaction medication error [Unknown]
  - Drug interaction [Unknown]
  - Gastritis erosive [Recovered/Resolved]
  - Intentional product use issue [Unknown]
  - Gastrointestinal haemorrhage [Unknown]
  - Anaemia [Recovered/Resolved]
  - Drug ineffective [Unknown]
  - Incorrect dose administered [Unknown]

NARRATIVE: CASE EVENT DATE: 2020
